FAERS Safety Report 19406353 (Version 5)
Quarter: 2022Q3

REPORT INFORMATION
  Report Type: Spontaneous
  Country: FR (occurrence: FR)
  Receive Date: 20210611
  Receipt Date: 20220706
  Transmission Date: 20221026
  Serious: Yes (Hospitalization, Disabling, Other)
  Sender: FDA-Public Use
  Company Number: FR-AUROBINDO-AUR-APL-2020-062947

PATIENT
  Age: 47 Year
  Sex: Female

DRUGS (52)
  1. CYPROTERONE [Suspect]
     Active Substance: CYPROTERONE
     Indication: Hyperandrogenism
     Dosage: ONE TABLET 7 DAYS A MONTH; THEN 1/2 TABLET 20 DAYS PER MONTH
     Route: 048
     Dates: start: 20120720
  2. CYPROTERONE [Suspect]
     Active Substance: CYPROTERONE
     Dosage: ONE TABLET 7 DAYS A MONTH; THEN 1/2 TABLET 20 DAYS PER MONTH
     Route: 048
     Dates: start: 20120326
  3. CYPROTERONE [Suspect]
     Active Substance: CYPROTERONE
     Dosage: ONE TABLET 7 DAYS A MONTH; THEN 1/2 TABLET 20 DAYS PER MONTH
     Route: 048
     Dates: start: 20121016
  4. CYPROTERONE [Suspect]
     Active Substance: CYPROTERONE
     Dosage: ONE TABLET 7 DAYS A MONTH; THEN 1/2 TABLET 20 DAYS PER MONTH
     Route: 048
     Dates: start: 20111125
  5. CYPROTERONE [Suspect]
     Active Substance: CYPROTERONE
     Indication: Hyperandrogenism
     Dosage: ONE TABLET 7 DAYS A MONTH; THEN 1/2 TABLET 20 DAYS PER MONTH
     Route: 048
     Dates: start: 20100701
  6. CYPROTERONE [Suspect]
     Active Substance: CYPROTERONE
     Dosage: ONE TABLET 7 DAYS A MONTH; THEN 1/2 TABLET 20 DAYS PER MONTH
     Route: 048
     Dates: start: 20100302
  7. CYPROTERONE [Suspect]
     Active Substance: CYPROTERONE
     Dosage: ONE TABLET 7 DAYS A MONTH; THEN 1/2 TABLET 20 DAYS PER MONTH
     Route: 048
     Dates: start: 20100914
  8. CYPROTERONE [Suspect]
     Active Substance: CYPROTERONE
     Dosage: ONE TABLET 7 DAYS A MONTH: THEN Y, TABLET 20 DAYS PER MONTH
     Route: 048
     Dates: start: 20090615
  9. CYPROTERONE [Suspect]
     Active Substance: CYPROTERONE
     Dosage: ONE TABLET 7 DAYS A MONTH; THEN 1/2 TABLET 20 DAYS PER MONTH
     Route: 048
     Dates: start: 20110728
  10. CYPROTERONE [Suspect]
     Active Substance: CYPROTERONE
     Dosage: ONE TABLET 7 DAYS A MONTH; THEN 1/2 TABLET 20 DAYS PER MONTH
     Route: 048
     Dates: start: 20091218
  11. CYPROTERONE [Suspect]
     Active Substance: CYPROTERONE
     Dosage: ONE TABLET 7 DAYS A MONTH; THEN 1/2 TABLET 20 DAYS PER MONTH
     Route: 048
     Dates: start: 20140603
  12. CYPROTERONE [Suspect]
     Active Substance: CYPROTERONE
     Dosage: ONE TABLET 7 DAYS A MONTH; THEN 1/2 TABLET 20 DAYS PER MONTH
     Route: 048
     Dates: start: 20101019
  13. CYPROTERONE [Suspect]
     Active Substance: CYPROTERONE
     Dosage: ONE TABLET 7 DAYS A MONTH; THEN 1/2 TABLET 20 DAYS PER MONTH
     Route: 048
     Dates: start: 20091105
  14. CYPROTERONE [Suspect]
     Active Substance: CYPROTERONE
     Dosage: ONE TABLET 7 DAYS A MONTH; THEN 1/2 TABLET 20 DAYS PER MONTH
     Route: 048
     Dates: start: 20091002
  15. OMEPRAZOLE [Suspect]
     Active Substance: OMEPRAZOLE
     Indication: Product used for unknown indication
     Dosage: UNK
     Route: 065
  16. CYPROTERONE ACETATE [Suspect]
     Active Substance: CYPROTERONE ACETATE
     Indication: Hyperandrogenism
     Dosage: ONE TABLET 7 DAYS A MONTH; THEN 1/2 TABLET 20 DAYS PER MONTH CYPROTERONE ACETATE ARROW
     Route: 048
     Dates: start: 20120102, end: 20120326
  17. CYPROTERONE ACETATE [Suspect]
     Active Substance: CYPROTERONE ACETATE
     Dosage: ONE TABLET 7 DAYS A MONTH; THEN 1/2 TABLET 20 DAYS PER MONTH
     Route: 048
     Dates: start: 20130111, end: 20130503
  18. CYPROTERONE ACETATE [Suspect]
     Active Substance: CYPROTERONE ACETATE
     Dosage: ONE TABLET 7 DAYS A MONTH; THEN 1/2 TABLET 20 DAYS PER MONTH
     Route: 048
     Dates: start: 20130602
  19. CYPROTERONE ACETATE [Suspect]
     Active Substance: CYPROTERONE ACETATE
     Dosage: ONE TABLET 7 DAYS A MONTH; THEN 1/2 TABLET 20 DAYS PER MONTH
     Route: 048
     Dates: start: 20100409, end: 20100701
  20. CYPROTERONE ACETATE [Suspect]
     Active Substance: CYPROTERONE ACETATE
     Dosage: ONE TABLET 7 DAYS A MONTH; THEN 1/2 TABLET 20 DAYS PER MONTH
     Route: 048
     Dates: start: 20110907, end: 20111125
  21. CYPROTERONE ACETATE [Interacting]
     Active Substance: CYPROTERONE ACETATE
     Indication: Hyperandrogenism
     Dosage: ONE TABLET 7 DAYS A MONTH: THEN Y, TABLET 20 DAYS PER MONTH
     Route: 048
     Dates: start: 20140712
  22. CYPROTERONE ACETATE [Interacting]
     Active Substance: CYPROTERONE ACETATE
     Dosage: ONE TABLET 7 DAYS A MONTH: THEN Y, TABLET 20 DAYS PER MONTH
     Route: 048
     Dates: start: 20140329
  23. CYPROTERONE [Interacting]
     Active Substance: CYPROTERONE
     Indication: Hyperandrogenism
     Dosage: ONE TABLET 7 DAYS A MONTH; THEN 1/2 TABLET 20 DAYS PER MONTH
     Route: 048
     Dates: start: 20110404
  24. CYPROTERONE [Interacting]
     Active Substance: CYPROTERONE
     Dosage: ONE TABLET 7 DAYS A MONTH; THEN 1/2 TABLET 20 DAYS PER MONTH
     Route: 048
     Dates: start: 20101206
  25. CYPROTERONE [Interacting]
     Active Substance: CYPROTERONE
     Dosage: ONE TABLET 7 DAYS A MONTH: THEN Y, TABLET 20 DAYS PER MONTH
     Route: 048
     Dates: start: 2000, end: 20040901
  26. CYPROTERONE [Interacting]
     Active Substance: CYPROTERONE
     Dosage: ONE TABLET 7 DAYS A MONTH: THEN Y, TABLET 20 DAYS PER MONTH
     Route: 048
     Dates: start: 200507, end: 201506
  27. KEPPRA [Suspect]
     Active Substance: LEVETIRACETAM
     Indication: Epilepsy
     Dosage: UNK
     Route: 048
     Dates: start: 201408, end: 20141111
  28. CYPROTERONE ACETATE [Interacting]
     Active Substance: CYPROTERONE ACETATE
     Indication: Hyperandrogenism
     Dosage: ONE TABLET 7 DAYS A MONTH: THEN Y, TABLET 20 DAYS PER MONTH
     Route: 048
     Dates: start: 20140513
  29. CYPROTERONE ACETATE [Interacting]
     Active Substance: CYPROTERONE ACETATE
     Dosage: ONE TABLET 7 DAYS A MONTH: THEN Y, TABLET 20 DAYS PER MONTH
     Route: 048
     Dates: start: 20130612
  30. CYPROTERONE ACETATE [Interacting]
     Active Substance: CYPROTERONE ACETATE
     Dosage: ONE TABLET 7 DAYS A MONTH: THEN Y, TABLET 20 DAYS PER MONTH
     Route: 048
     Dates: start: 20130503
  31. CYPROTERONE ACETATE [Interacting]
     Active Substance: CYPROTERONE ACETATE
     Dosage: ONE TABLET 7 DAYS A MONTH: THEN Y, TABLET 20 DAYS PER MONTH
     Route: 048
     Dates: start: 20130827
  32. CYPROTERONE ACETATE [Interacting]
     Active Substance: CYPROTERONE ACETATE
     Dosage: ONE TABLET 7 DAYS A MONTH: THEN Y, TABLET 20 DAYS PER MONTH
     Route: 048
     Dates: start: 20140122
  33. CYPROTERONE ACETATE [Interacting]
     Active Substance: CYPROTERONE ACETATE
     Dosage: ONE TABLET 7 DAYS A MONTH: THEN Y, TABLET 20 DAYS PER MONTH
     Route: 048
     Dates: start: 20130926
  34. CYPROTERONE ACETATE [Interacting]
     Active Substance: CYPROTERONE ACETATE
     Indication: Hyperandrogenism
     Dosage: ONE TABLET 7 DAYS A MONTH; THEN 1/2 TABLET 20 DAYS PER MONTH
     Route: 048
     Dates: start: 20110616
  35. CYPROTERONE [Interacting]
     Active Substance: CYPROTERONE
     Indication: Hyperandrogenism
     Dosage: UNK (ONE TABLET 7 DAYS A MONTH; THEN 1/2 TABLET 20 DAYS PER MONTH)
     Route: 048
     Dates: start: 20110404
  36. CYPROTERONE [Interacting]
     Active Substance: CYPROTERONE
     Dosage: UNK (ONE TABLET 7 DAYS A MONTH; THEN 1/2 TABLET 20 DAYS PER MONTH)
     Route: 048
     Dates: start: 20101206
  37. CYPROTERONE ACETATE [Suspect]
     Active Substance: CYPROTERONE ACETATE
     Indication: Hyperandrogenism
     Dosage: 1/2 TABLET 7 DAYS A MONTH, THEN ONE TABLET 7 DAYS A MONTH, THEN 1/2 TABLET 20 DAYS A MONTH
     Route: 048
     Dates: start: 200507, end: 201506
  38. CYPROTERONE ACETATE [Suspect]
     Active Substance: CYPROTERONE ACETATE
     Dosage: ONE TABLET 7 DAYS A MONTH, THEN 1/2 TABLET 20 DAYS PER MONTH
     Route: 048
     Dates: start: 199806, end: 20040901
  39. CYPROTERONE ACETATE [Suspect]
     Active Substance: CYPROTERONE ACETATE
     Dosage: 1 DOSAGE FORM, 6 DAYS A MONTH
     Route: 048
  40. CYPROTERONE ACETATE [Suspect]
     Active Substance: CYPROTERONE ACETATE
     Dosage: 1 DOSAGE FORM, DAILY
     Route: 065
     Dates: start: 20000916
  41. CYPROTERONE ACETATE [Suspect]
     Active Substance: CYPROTERONE ACETATE
     Dosage: 1 DOSAGE FORM, DAILY
     Route: 065
     Dates: start: 19990723
  42. CYPROTERONE ACETATE [Suspect]
     Active Substance: CYPROTERONE ACETATE
     Dosage: 0.5 DOSAGE FORM, 21 OR 28 DAYS A MONTH
     Route: 048
  43. CYPROTERONE ACETATE [Suspect]
     Active Substance: CYPROTERONE ACETATE
     Dosage: 1 DOSAGE FORM, 10 DAYS A MONTH
     Route: 048
     Dates: start: 19980217
  44. ESTRADIOL [Concomitant]
     Active Substance: ESTRADIOL
     Indication: Product used for unknown indication
     Dosage: ONE TABLET 20 DAYS PER MONTH
     Route: 065
     Dates: start: 200507, end: 20120827
  45. ESTRADIOL [Concomitant]
     Active Substance: ESTRADIOL
     Dosage: ONE TABLET 20 DAYS PER MONTH
     Route: 065
     Dates: start: 20050713, end: 2013
  46. DESOGESTREL\ETHINYL ESTRADIOL [Concomitant]
     Active Substance: DESOGESTREL\ETHINYL ESTRADIOL
     Indication: Product used for unknown indication
     Dosage: UNK
     Route: 065
     Dates: start: 200007, end: 200408
  47. DESOGESTREL\ETHINYL ESTRADIOL [Concomitant]
     Active Substance: DESOGESTREL\ETHINYL ESTRADIOL
     Dosage: ONE TABLET 7 DAYS A MONTH: THEN Y, TABLET 20 DAYS PER MONTH   UNK
     Route: 048
     Dates: start: 200507, end: 201507
  48. LUTESTRAL [Concomitant]
     Indication: Product used for unknown indication
     Dosage: UNK
     Route: 065
     Dates: start: 19961005
  49. ETHINYL ESTRADIOL\LEVONORGESTREL [Concomitant]
     Active Substance: ETHINYL ESTRADIOL\LEVONORGESTREL
     Indication: Product used for unknown indication
     Dosage: UNK
     Route: 065
     Dates: start: 19980217, end: 202007
  50. ETHINYL ESTRADIOL\LEVONORGESTREL [Concomitant]
     Active Substance: ETHINYL ESTRADIOL\LEVONORGESTREL
     Dosage: UNK
     Route: 065
     Dates: start: 19990723
  51. ZOMIG [Concomitant]
     Active Substance: ZOLMITRIPTAN
     Indication: Migraine
     Dosage: 12 DOSAGE FORM, MONTHLY (12 DOSAGE FORM, PER MONTH)
     Route: 065
  52. ALMOTRIPTAN MALATE [Concomitant]
     Active Substance: ALMOTRIPTAN MALATE
     Indication: Migraine
     Dosage: UNK
     Route: 065

REACTIONS (10)
  - Condition aggravated [Unknown]
  - Impaired work ability [Unknown]
  - Tension headache [Not Recovered/Not Resolved]
  - Sleep disorder [Not Recovered/Not Resolved]
  - Contraindicated product prescribed [Unknown]
  - Intracranial tumour haemorrhage [Recovered/Resolved]
  - Fatigue [Not Recovered/Not Resolved]
  - Product prescribing error [Unknown]
  - Meningioma [Recovered/Resolved with Sequelae]
  - Headache [Not Recovered/Not Resolved]

NARRATIVE: CASE EVENT DATE: 20080101
